FAERS Safety Report 15198335 (Version 1)
Quarter: 2018Q3

REPORT INFORMATION
  Report Type: Spontaneous
  Country: US (occurrence: US)
  Receive Date: 20180725
  Receipt Date: 20180725
  Transmission Date: 20181010
  Serious: No
  Sender: FDA-Public Use
  Company Number: US-VEROSCIENCE-VER-2018-00008

PATIENT

DRUGS (5)
  1. TRULICITY [Concomitant]
     Active Substance: DULAGLUTIDE
     Dosage: UNK
  2. PRAVASTATIN. [Concomitant]
     Active Substance: PRAVASTATIN
     Dosage: UNK
  3. TRESIBA [Concomitant]
     Active Substance: INSULIN DEGLUDEC
     Dosage: UNK
  4. FOSAMAX [Concomitant]
     Active Substance: ALENDRONATE SODIUM
     Dosage: 1 TABLET QD
     Dates: start: 20180712
  5. CYCLOSET [Suspect]
     Active Substance: BROMOCRIPTINE MESYLATE
     Indication: TYPE 2 DIABETES MELLITUS
     Dosage: 0.8 MG MILLIGRAM(S), UNK
     Route: 048
     Dates: start: 201803, end: 20180707

REACTIONS (1)
  - Nausea [Recovering/Resolving]

NARRATIVE: CASE EVENT DATE: 201803
